FAERS Safety Report 7788810-4 (Version None)
Quarter: 2011Q3

REPORT INFORMATION
  Report Type: 
  Country: None (occurrence: None)
  Receive Date: 20110928
  Receipt Date: 20110921
  Transmission Date: 20111222
  Serious: Yes (Hospitalization)
  Sender: FDA-Public Use
  Company Number: 2010MA005505

PATIENT
  Age: 37 Year
  Sex: Male

DRUGS (3)
  1. CLOZARIL [Suspect]
     Indication: SCHIZOPHRENIA
     Dosage: 300 MG; QD; PO
     Route: 048
     Dates: start: 19950307
  2. FEVERALL [Suspect]
     Dosage: 30 DF; PO
     Route: 048
     Dates: start: 20100303
  3. QUETIAPINE [Concomitant]

REACTIONS (3)
  - ACUTE HEPATIC FAILURE [None]
  - OVERDOSE [None]
  - OFF LABEL USE [None]
